FAERS Safety Report 5005683-3 (Version None)
Quarter: 2006Q2

REPORT INFORMATION
  Report Type: 
  Country: None (occurrence: None)
  Receive Date: 20060517
  Receipt Date: 20060517
  Transmission Date: 20061013
  Serious: Yes (Other)
  Sender: FDA-Public Use
  Company Number: None

PATIENT
  Age: 57 Year
  Sex: Male
  Weight: 118.3888 kg

DRUGS (2)
  1. LYRICA [Suspect]
     Indication: BONE DISORDER
     Dosage: SEE IMAGE
     Route: 048
  2. LYRICA [Suspect]
     Indication: OSTEOARTHRITIS
     Dosage: SEE IMAGE
     Route: 048

REACTIONS (10)
  - ABDOMINAL DISTENSION [None]
  - ABDOMINAL PAIN [None]
  - BACK PAIN [None]
  - DERMATITIS [None]
  - DIARRHOEA [None]
  - FAECES HARD [None]
  - HAEMORRHAGE [None]
  - NAUSEA [None]
  - PHARMACEUTICAL PRODUCT COMPLAINT [None]
  - SECRETION DISCHARGE [None]
